FAERS Safety Report 4456907-2 (Version None)
Quarter: 2004Q3

REPORT INFORMATION
  Report Type: 
  Country: None (occurrence: None)
  Receive Date: 20040923
  Receipt Date: 20040912
  Transmission Date: 20050211
  Serious: Yes (Death)
  Sender: FDA-Public Use
  Company Number: FR-ROCHE-380426

PATIENT
  Sex: Male

DRUGS (3)
  1. FUZEON [Suspect]
     Indication: HIV INFECTION
     Route: 058
  2. COMBIVIR [Concomitant]
     Indication: HIV INFECTION
  3. KALETRA [Concomitant]
     Indication: HIV INFECTION

REACTIONS (1)
  - PULMONARY TUBERCULOSIS [None]
